FAERS Safety Report 5603106-4 (Version None)
Quarter: 2008Q1

REPORT INFORMATION
  Report Type: 
  Country: None (occurrence: None)
  Receive Date: 20080125
  Receipt Date: 20080123
  Transmission Date: 20080703
  Serious: Yes (Hospitalization)
  Sender: FDA-Public Use
  Company Number: US-BRISTOL-MYERS SQUIBB COMPANY-14050983

PATIENT
  Age: 58 Year
  Sex: Female
  Weight: 54 kg

DRUGS (13)
  1. PACLITAXEL [Suspect]
     Indication: NEOPLASM
     Route: 042
     Dates: start: 20071218, end: 20071218
  2. CARBOPLATIN [Suspect]
     Indication: NEOPLASM
     Dosage: AUC 6
     Route: 042
     Dates: start: 20071218, end: 20071218
  3. SU-011,248 [Suspect]
     Indication: NEOPLASM
     Route: 048
     Dates: start: 20071211, end: 20071226
  4. CLORAZEPATE [Concomitant]
     Route: 048
  5. LESCOL [Concomitant]
     Route: 048
  6. OXYCONTIN [Concomitant]
     Route: 048
  7. OXYCODONE [Concomitant]
     Route: 048
  8. METOPROLOL TARTRATE [Concomitant]
  9. SANDOSTATIN [Concomitant]
     Route: 030
  10. PERCOCET [Concomitant]
     Route: 048
  11. COMPAZINE [Concomitant]
     Route: 048
  12. VITAMIN CAP [Concomitant]
     Route: 048
  13. HYDROCORTISONE [Concomitant]
     Route: 061

REACTIONS (3)
  - HYPOCALCAEMIA [None]
  - HYPOKALAEMIA [None]
  - NEUTROPENIA [None]
